FAERS Safety Report 10423003 (Version 1)
Quarter: 2014Q3

REPORT INFORMATION
  Report Type: Report from Study
  Country: CA (occurrence: CA)
  Receive Date: 20140902
  Receipt Date: 20140902
  Transmission Date: 20150326
  Serious: Yes (Other)
  Sender: FDA-Public Use
  Company Number: PHHY2014CA106790

PATIENT

DRUGS (1)
  1. EVEROLIMUS [Suspect]
     Active Substance: EVEROLIMUS
     Indication: BREAST CANCER METASTATIC

REACTIONS (5)
  - Hepatic enzyme increased [Unknown]
  - Hyperglycaemia [Unknown]
  - Pneumonitis [Unknown]
  - Mucosal inflammation [Unknown]
  - Platelet count decreased [Unknown]
